FAERS Safety Report 9911920 (Version 2)
Quarter: 2014Q1

REPORT INFORMATION
  Report Type: Spontaneous
  Country: US (occurrence: US)
  Receive Date: 20140219
  Receipt Date: 20140219
  Transmission Date: 20141002
  Serious: No
  Sender: FDA-Public Use
  Company Number: US-MYLANLABS-2013S1019234

PATIENT
  Age: 51 Year
  Sex: Female
  Weight: 61.22 kg

DRUGS (4)
  1. EPIPEN [Suspect]
     Indication: ALLERGY TO STING
     Dosage: 0.3 MG, AS NEEDED
     Route: 030
     Dates: start: 20130818, end: 20130818
  2. ZANTAC [Concomitant]
     Dosage: 2X/DAY
  3. ZYRTEC [Concomitant]
     Dosage: 2X/DAY
  4. PREDNISONE [Concomitant]
     Dosage: 1X/DAY

REACTIONS (1)
  - Accidental exposure to product [Recovered/Resolved]
